FAERS Safety Report 7828224-1 (Version None)
Quarter: 2011Q4

REPORT INFORMATION
  Report Type: 
  Country: None (occurrence: None)
  Receive Date: 20111020
  Receipt Date: 20111005
  Transmission Date: 20120403
  Serious: Yes (Hospitalization)
  Sender: FDA-Public Use
  Company Number: US-BAYER-2011-096431

PATIENT
  Age: 30 Year
  Sex: Female

DRUGS (1)
  1. NAPROXEN SODIUM [Suspect]
     Indication: ARTHRALGIA

REACTIONS (5)
  - PRURITUS [None]
  - CHROMATURIA [None]
  - LIVER DISORDER [None]
  - FAECES PALE [None]
  - JAUNDICE [None]
